FAERS Safety Report 6402357-9 (Version None)
Quarter: 2009Q4

REPORT INFORMATION
  Report Type: 
  Country: None (occurrence: None)
  Receive Date: 20091015
  Receipt Date: 20091007
  Transmission Date: 20100525
  Serious: Yes (Other)
  Sender: FDA-Public Use
  Company Number: DE-WYE-H11587609

PATIENT
  Sex: Male

DRUGS (1)
  1. AMIODARONE HYDROCHLORIDE [Suspect]
     Dosage: 200 MG TABLET/DOSE AND FREQUENCY NOT PROVIDED
     Route: 048
     Dates: start: 20081001, end: 20090401

REACTIONS (2)
  - ORGANISING PNEUMONIA [None]
  - PNEUMONIA [None]
